FAERS Safety Report 19506309 (Version 1)
Quarter: 2021Q3

REPORT INFORMATION
  Report Type: Spontaneous
  Country: IT (occurrence: IT)
  Receive Date: 20210708
  Receipt Date: 20210708
  Transmission Date: 20211014
  Serious: Yes (Other)
  Sender: FDA-Public Use
  Company Number: IT-AUROBINDO-AUR-APL-2021-028885

PATIENT
  Age: 59 Year
  Sex: Female

DRUGS (1)
  1. IMATINIB. [Suspect]
     Active Substance: IMATINIB MESYLATE
     Indication: CHRONIC MYELOID LEUKAEMIA
     Dosage: 40 MILLIGRAM, ONCE A DAY(400 MG, PER DAY )
     Route: 065

REACTIONS (1)
  - Pyoderma gangrenosum [Recovering/Resolving]
